FAERS Safety Report 8875150 (Version 2)
Quarter: 2012Q4

REPORT INFORMATION
  Report Type: 
  Country: US (occurrence: US)
  Receive Date: 20121023
  Receipt Date: 20121217
  Transmission Date: 20130627
  Serious: Yes (Other)
  Sender: FDA-Public Use
  Company Number: US-BAYER-2012-108456

PATIENT
  Sex: Female

DRUGS (1)
  1. MIRENA [Suspect]
     Indication: CONTRACEPTION
     Dosage: 20 mcg/24hr, CONT
     Route: 015
     Dates: start: 201102, end: 2012

REACTIONS (6)
  - Uterine perforation [None]
  - Abdominal pain lower [None]
  - Device dislocation [None]
  - Pain [None]
  - General physical health deterioration [None]
  - Stress [None]
